FAERS Safety Report 11339979 (Version 1)
Quarter: 2015Q3

REPORT INFORMATION
  Report Type: Spontaneous
  Country: US (occurrence: None)
  Receive Date: 20150804
  Receipt Date: 20150804
  Transmission Date: 20151125
  Serious: Yes (Hospitalization)
  Sender: FDA-Public Use
  Company Number: None

PATIENT
  Age: 42 Year
  Sex: Female
  Weight: 68.04 kg

DRUGS (9)
  1. LIALDA [Concomitant]
     Active Substance: MESALAMINE
  2. VIT B-12 [Concomitant]
  3. NADOLOL. [Concomitant]
     Active Substance: NADOLOL
  4. VITAMIN D [Concomitant]
     Active Substance: CHOLECALCIFEROL
  5. RECLAST [Suspect]
     Active Substance: ZOLEDRONIC ACID
     Indication: OSTEOPENIA
     Dosage: INFUSION ONCE PER YEAR
     Dates: start: 20150226, end: 20150226
  6. VITAMIN C [Concomitant]
     Active Substance: ASCORBIC ACID
  7. 6MP [Concomitant]
     Active Substance: MERCAPTOPURINE
  8. PRAVACHOL [Concomitant]
     Active Substance: PRAVASTATIN SODIUM
  9. MULTIVITAMIN [Concomitant]
     Active Substance: VITAMINS

REACTIONS (4)
  - Palpitations [None]
  - Chest discomfort [None]
  - Discomfort [None]
  - Sinus tachycardia [None]

NARRATIVE: CASE EVENT DATE: 20150303
